FAERS Safety Report 8982821 (Version 1)
Quarter: 2012Q4

REPORT INFORMATION
  Report Type: Report from Study
  Country: US (occurrence: US)
  Receive Date: 20121224
  Receipt Date: 20121224
  Transmission Date: 20130627
  Serious: No
  Sender: FDA-Public Use
  Company Number: US-ROCHE-GNE265248

PATIENT
  Sex: Female

DRUGS (1)
  1. OMALIZUMAB [Suspect]
     Indication: INFLAMMATION
     Route: 065
     Dates: start: 20080710

REACTIONS (4)
  - Pain in extremity [Unknown]
  - Injection site pain [Unknown]
  - Pain [Unknown]
  - Arthralgia [Unknown]
